FAERS Safety Report 6150877-7 (Version None)
Quarter: 2009Q2

REPORT INFORMATION
  Report Type: 
  Country: None (occurrence: None)
  Receive Date: 20090406
  Receipt Date: 20090324
  Transmission Date: 20091009
  Serious: Yes (Hospitalization, Disabling)
  Sender: FDA-Public Use
  Company Number: 200914545

PATIENT
  Sex: Female
  Weight: 79.3795 kg

DRUGS (23)
  1. VIVAGLOBIN [Suspect]
     Indication: IMMUNODEFICIENCY COMMON VARIABLE
     Dosage: SUBCUTANEOUS
     Route: 058
     Dates: start: 20081027, end: 20090112
  2. PREVACID (LASOPRAZOLE) [Concomitant]
  3. COZAAR [Concomitant]
  4. ASPIRIN [Concomitant]
  5. METOPROLOL TARTRATE [Concomitant]
  6. XYZAL [Concomitant]
  7. ADVAIR DISKUS 100/50 [Concomitant]
  8. ASMANEX TWISTHALER [Concomitant]
  9. SINGULAIR [Concomitant]
  10. ZANTAC 150 [Concomitant]
  11. DICYCLOMINE [Concomitant]
  12. MYLANTA (CALCIUM CARBONATE) [Concomitant]
  13. GAS-X (DIMETICONE, ACTIVATED) [Concomitant]
  14. TUMS EX (CALCIUM CARBONATE) [Concomitant]
  15. ACETAMINOPHEN [Concomitant]
  16. NASONEX [Concomitant]
  17. ASTELIN (DIPROPHYLLINE) [Concomitant]
  18. IMODIUM [Concomitant]
  19. CARISOPRODOL [Concomitant]
  20. TRAMADOL [Concomitant]
  21. MELOXICAM [Concomitant]
  22. XANAX [Concomitant]
  23. ASTELIN SPRAY (DIPROPHYLLINE) [Concomitant]

REACTIONS (8)
  - AGITATION [None]
  - DRUG INEFFECTIVE [None]
  - ERYTHEMA [None]
  - HYPERSENSITIVITY [None]
  - INFUSION SITE PRURITUS [None]
  - MOVEMENT DISORDER [None]
  - NEUROLOGICAL SYMPTOM [None]
  - PRURITUS [None]
